FAERS Safety Report 11318431 (Version 55)
Quarter: 2019Q1

REPORT INFORMATION
  Report Type: Report from Study
  Country: CA (occurrence: CA)
  Receive Date: 20150728
  Receipt Date: 20190228
  Transmission Date: 20190417
  Serious: Yes (Hospitalization, Other)
  Sender: FDA-Public Use
  Company Number: CA-ROCHE-1584433

PATIENT
  Age: 71 Year
  Sex: Female
  Weight: 50 kg

DRUGS (18)
  1. ACTEMRA [Suspect]
     Active Substance: TOCILIZUMAB
     Indication: TEMPORAL ARTERITIS
     Route: 042
     Dates: start: 20150526, end: 20180816
  2. MINOCYCLINE [Suspect]
     Active Substance: MINOCYCLINE\MINOCYCLINE HYDROCHLORIDE
     Indication: PRODUCT USED FOR UNKNOWN INDICATION
     Route: 048
     Dates: start: 201610, end: 201610
  3. MOXIFLOXACIN. [Concomitant]
     Active Substance: MOXIFLOXACIN
     Route: 061
  4. CALCIUM CARBONATE. [Suspect]
     Active Substance: CALCIUM CARBONATE
     Indication: PRODUCT USED FOR UNKNOWN INDICATION
     Route: 065
  5. ACTEMRA [Suspect]
     Active Substance: TOCILIZUMAB
     Route: 058
     Dates: start: 20170622
  6. ACTEMRA [Suspect]
     Active Substance: TOCILIZUMAB
     Dosage: 400MG AT 8MG/KG
     Route: 042
  7. PREDNISONE. [Concomitant]
     Active Substance: PREDNISONE
     Route: 065
  8. NEVANAC [Concomitant]
     Active Substance: NEPAFENAC
     Route: 061
  9. PREDNISOLONE. [Concomitant]
     Active Substance: PREDNISOLONE
     Route: 061
  10. ASPIRIN. [Concomitant]
     Active Substance: ASPIRIN
  11. VITAMIN B3 [Concomitant]
     Active Substance: NIACIN
  12. ACTEMRA [Suspect]
     Active Substance: TOCILIZUMAB
     Indication: VASCULITIS
     Route: 042
     Dates: start: 20150625
  13. ACTEMRA [Suspect]
     Active Substance: TOCILIZUMAB
     Route: 042
     Dates: start: 20170622
  14. METFORMIN [Concomitant]
     Active Substance: METFORMIN HYDROCHLORIDE
     Route: 065
  15. LEFLUNOMIDE. [Concomitant]
     Active Substance: LEFLUNOMIDE
  16. ACTEMRA [Suspect]
     Active Substance: TOCILIZUMAB
     Indication: TEMPORAL ARTERITIS
     Route: 058
     Dates: start: 20180911
  17. METHOTREXATE. [Concomitant]
     Active Substance: METHOTREXATE
     Route: 048
  18. FOLIC ACID. [Concomitant]
     Active Substance: FOLIC ACID

REACTIONS (46)
  - Heart rate increased [Unknown]
  - Rhinitis [Unknown]
  - Headache [Not Recovered/Not Resolved]
  - Weight decreased [Recovering/Resolving]
  - Ill-defined disorder [Unknown]
  - Nasal congestion [Recovered/Resolved]
  - Blood pressure increased [Not Recovered/Not Resolved]
  - Loose tooth [Not Recovered/Not Resolved]
  - Temporal arteritis [Recovered/Resolved]
  - Blood pressure diastolic increased [Unknown]
  - Pneumonia [Not Recovered/Not Resolved]
  - Herpes zoster [Not Recovered/Not Resolved]
  - Stress [Unknown]
  - Rash macular [Not Recovered/Not Resolved]
  - Blood urine present [Unknown]
  - Contusion [Recovering/Resolving]
  - Confusional state [Not Recovered/Not Resolved]
  - Musculoskeletal pain [Not Recovered/Not Resolved]
  - Asthenia [Recovering/Resolving]
  - Urinary tract infection [Not Recovered/Not Resolved]
  - Heat stroke [Recovered/Resolved]
  - Rheumatoid arthritis [Unknown]
  - Mass [Unknown]
  - Vasculitis [Recovered/Resolved]
  - Asthenia [Not Recovered/Not Resolved]
  - Rhinorrhoea [Not Recovered/Not Resolved]
  - Calcinosis [Unknown]
  - Gingival discolouration [Not Recovered/Not Resolved]
  - Nephrolithiasis [Unknown]
  - Pemphigoid [Recovered/Resolved]
  - Fatigue [Recovering/Resolving]
  - Tooth loss [Unknown]
  - Neuralgia [Unknown]
  - Renal cyst [Not Recovered/Not Resolved]
  - Vasodilatation [Not Recovered/Not Resolved]
  - Nasopharyngitis [Recovered/Resolved]
  - Blood pressure fluctuation [Unknown]
  - Neck pain [Not Recovered/Not Resolved]
  - Nasopharyngitis [Not Recovered/Not Resolved]
  - Palpitations [Recovering/Resolving]
  - Renal neoplasm [Not Recovered/Not Resolved]
  - Feeling cold [Unknown]
  - Hypotension [Unknown]
  - Hypotension [Unknown]
  - Vein disorder [Unknown]
  - Renal pain [Unknown]

NARRATIVE: CASE EVENT DATE: 20150526
